FAERS Safety Report 15267905 (Version 1)
Quarter: 2018Q3

REPORT INFORMATION
  Report Type: Spontaneous
  Country: US (occurrence: US)
  Receive Date: 20180725
  Receipt Date: 20180725
  Transmission Date: 20181010
  Serious: Yes (Hospitalization)
  Sender: FDA-Public Use
  Company Number: None

PATIENT
  Sex: Female

DRUGS (10)
  1. HYDROCO / APAP [Concomitant]
  2. TRAZODONE [Concomitant]
     Active Substance: TRAZODONE HYDROCHLORIDE
  3. STOOL SOFTNER [Concomitant]
  4. CYCLOBENZAPR [Concomitant]
     Active Substance: CYCLOBENZAPRINE
  5. IBUPROFEN. [Concomitant]
     Active Substance: IBUPROFEN
  6. CENTRUM [Concomitant]
     Active Substance: VITAMINS
  7. LYRICA [Concomitant]
     Active Substance: PREGABALIN
  8. ADCIRCA [Suspect]
     Active Substance: TADALAFIL
     Indication: PULMONARY ARTERIAL HYPERTENSION
     Route: 048
     Dates: start: 20171012
  9. PLAQUENIL [Concomitant]
     Active Substance: HYDROXYCHLOROQUINE SULFATE
  10. PREDNISONE. [Concomitant]
     Active Substance: PREDNISONE

REACTIONS (1)
  - Cardiac failure congestive [None]
